FAERS Safety Report 9535596 (Version 1)
Quarter: 2013Q3

REPORT INFORMATION
  Report Type: Spontaneous
  Country: IL (occurrence: IL)
  Receive Date: 20130919
  Receipt Date: 20130919
  Transmission Date: 20140515
  Serious: Yes (Other)
  Sender: FDA-Public Use
  Company Number: IL-ROCHE-1276306

PATIENT
  Sex: Male

DRUGS (4)
  1. AVASTIN [Suspect]
     Indication: COLON CANCER METASTATIC
     Route: 065
  2. FOLINIC ACID [Concomitant]
     Indication: COLON CANCER METASTATIC
  3. 5-FLUOROURACIL [Concomitant]
     Indication: COLON CANCER METASTATIC
  4. IRINOTECAN [Concomitant]
     Indication: COLON CANCER METASTATIC

REACTIONS (1)
  - Atrial fibrillation [Unknown]
